FAERS Safety Report 4971617-0 (Version None)
Quarter: 2006Q2

REPORT INFORMATION
  Report Type: 
  Country: None (occurrence: None)
  Receive Date: 20060406
  Receipt Date: 20060331
  Transmission Date: 20061013
  Serious: Yes (Hospitalization, Other)
  Sender: FDA-Public Use
  Company Number: 2003119500

PATIENT
  Age: 68 Year
  Sex: Female
  Weight: 45.3 kg

DRUGS (10)
  1. CARDENALIN (DOXAZOSIN) [Suspect]
     Indication: HYPERTENSION
     Dosage: 2 MG (BID); ORAL
     Route: 048
     Dates: start: 20020901, end: 20031017
  2. AMLODIPINE [Suspect]
     Indication: HYPERTENSION
     Dosage: 5 MG (DAILY); ORAL
     Route: 048
     Dates: start: 20020601, end: 20031017
  3. FLUVOXAMINE MALEATE [Suspect]
     Indication: DEPRESSION
     Dosage: 25 MG (DAILY); ORAL
     Route: 048
     Dates: start: 20030911, end: 20031016
  4. NICERGOLINE (NICERGOLINE) [Suspect]
     Indication: CEREBRAL CIRCULATORY FAILURE
     Dosage: 15 MG (TID); ORAL
     Route: 048
     Dates: end: 20031017
  5. ENALAPRIL MALEATE [Suspect]
     Indication: HYPERTENSION
     Dosage: 5 MG (DAILY); ORAL
     Route: 048
     Dates: start: 20030801, end: 20031017
  6. SIMVASTATIN [Suspect]
     Indication: HYPERLIPIDAEMIA
     Dosage: MG (DAILY); ORAL
     Route: 048
     Dates: start: 20030911, end: 20031016
  7. LECICARBON (SODIUM BICARBONATE, SODIUM PHOSPHATE MONOBASIC (ANHYDRATE) [Concomitant]
  8. AMBROXOL HYDROCHLORIDE [Concomitant]
  9. ALDIOXA [Concomitant]
  10. BROTIZOLAM [Concomitant]

REACTIONS (15)
  - ACTIVATED PARTIAL THROMBOPLASTIN TIME PROLONGED [None]
  - BLOOD PRESSURE DIASTOLIC DECREASED [None]
  - BLOOD PRESSURE SYSTOLIC DECREASED [None]
  - CERVICAL MYELOPATHY [None]
  - DEPRESSED LEVEL OF CONSCIOUSNESS [None]
  - DEPRESSION [None]
  - FAECES HARD [None]
  - FALL [None]
  - HAEMORRHAGE [None]
  - HAEMORRHAGIC DIATHESIS [None]
  - HEART RATE DECREASED [None]
  - HYPERLIPIDAEMIA [None]
  - QUADRIPLEGIA [None]
  - RECTAL ULCER HAEMORRHAGE [None]
  - SPONDYLITIC MYELOPATHY [None]
